FAERS Safety Report 21233977 (Version 2)
Quarter: 2022Q3

REPORT INFORMATION
  Report Type: Spontaneous
  Country: US (occurrence: US)
  Receive Date: 20220819
  Receipt Date: 20220824
  Transmission Date: 20221027
  Serious: Yes (Other)
  Sender: FDA-Public Use
  Company Number: US-HALEON-USCH2022AMR028047

PATIENT
  Sex: Male
  Weight: 79.83 kg

DRUGS (9)
  1. PANADOL [Suspect]
     Active Substance: ACETAMINOPHEN
     Indication: Pain
     Dosage: UNK
  2. IBUPROFEN [Suspect]
     Active Substance: IBUPROFEN
     Indication: Pain
     Dosage: UNK
  3. ASPIRIN [Suspect]
     Active Substance: ASPIRIN
     Indication: Pain
     Dosage: UNK
  4. PFIZER-BIONTECH COVID-19 VACCINE [Suspect]
     Active Substance: TOZINAMERAN
     Indication: COVID-19 prophylaxis
     Dosage: UNK (1ST DOSE)
     Dates: start: 20210323
  5. PFIZER-BIONTECH COVID-19 VACCINE [Suspect]
     Active Substance: TOZINAMERAN
     Dosage: UNK (2ND DOSE)
     Dates: start: 20110413
  6. PFIZER-BIONTECH COVID-19 VACCINE [Suspect]
     Active Substance: TOZINAMERAN
     Dosage: UNK (3RD DOSE)
     Dates: start: 20210820
  7. PFIZER-BIONTECH COVID-19 VACCINE [Suspect]
     Active Substance: TOZINAMERAN
     Dosage: UNK (4TH DOSE)
     Dates: start: 20220510
  8. PERCOCET [Suspect]
     Active Substance: ACETAMINOPHEN\OXYCODONE HYDROCHLORIDE
     Indication: Product used for unknown indication
     Dosage: TWO PERCOCET EVERY FOUR HOURS
  9. MORPHINE [Suspect]
     Active Substance: MORPHINE
     Indication: Product used for unknown indication
     Dosage: UNK

REACTIONS (24)
  - Myocardial infarction [Unknown]
  - Hepatic steatosis [Unknown]
  - Renal disorder [Unknown]
  - Abdominal distension [Unknown]
  - Neoplasm [Unknown]
  - Liver disorder [Unknown]
  - Condition aggravated [Unknown]
  - Pain [Unknown]
  - Bone pain [Unknown]
  - Pyrexia [Unknown]
  - Gait inability [Unknown]
  - Asthenia [Unknown]
  - Headache [Unknown]
  - Swelling [Unknown]
  - Hernia [Unknown]
  - Oropharyngeal pain [Unknown]
  - Back pain [Unknown]
  - Feeling abnormal [Unknown]
  - Gynaecomastia [Unknown]
  - Pain [Unknown]
  - Dizziness [Unknown]
  - Feeding disorder [Unknown]
  - Abdominal pain [Unknown]
  - Drug ineffective [Unknown]
